FAERS Safety Report 13918643 (Version 1)
Quarter: 2017Q3

REPORT INFORMATION
  Report Type: Spontaneous
  Country: JP (occurrence: JP)
  Receive Date: 20170829
  Receipt Date: 20170829
  Transmission Date: 20171127
  Serious: Yes (Other)
  Sender: FDA-Public Use
  Company Number: PHJP1999JP008840

PATIENT
  Age: 36 Year
  Sex: Female

DRUGS (3)
  1. METHYLPREDNISOLONE. [Concomitant]
     Active Substance: METHYLPREDNISOLONE
     Indication: KIDNEY TRANSPLANT REJECTION
     Route: 065
     Dates: start: 198604
  2. MIZORIBINE [Concomitant]
     Active Substance: MIZORIBINE
     Indication: KIDNEY TRANSPLANT REJECTION
     Route: 065
     Dates: start: 198604
  3. SANDIMMUN [Suspect]
     Active Substance: CYCLOSPORINE
     Indication: KIDNEY TRANSPLANT REJECTION
     Dosage: UNK
     Route: 065
     Dates: start: 198604

REACTIONS (2)
  - Aplasia pure red cell [Recovered/Resolved]
  - Acute megakaryocytic leukaemia [Recovered/Resolved]

NARRATIVE: CASE EVENT DATE: 199601
